FAERS Safety Report 6144737-5 (Version None)
Quarter: 2009Q2

REPORT INFORMATION
  Report Type: 
  Country: None (occurrence: None)
  Receive Date: 20090401
  Receipt Date: 20090318
  Transmission Date: 20091009
  Serious: Yes (Hospitalization)
  Sender: FDA-Public Use
  Company Number: DSA_33426_2009

PATIENT
  Sex: Female

DRUGS (7)
  1. DILTIAZEM [Suspect]
     Indication: DRUG USE FOR UNKNOWN INDICATION
     Dosage: (120 MG QD ORAL)
     Route: 048
     Dates: start: 20090218, end: 20090304
  2. INVANZ [Suspect]
     Indication: LUNG DISORDER
     Dosage: (1 G QD INTRAVENOUS DRIP)
     Route: 041
     Dates: start: 20090216, end: 20090302
  3. ZITHROMAX [Suspect]
     Indication: LUNG DISORDER
     Dosage: (250 MG QD ORAL)
     Route: 048
     Dates: start: 20090216, end: 20090302
  4. VASTAREL [Concomitant]
  5. SEROPLEX [Concomitant]
  6. FRESUBIN [Concomitant]
  7. CERNEVIT /01027001/ [Concomitant]

REACTIONS (2)
  - LUNG DISORDER [None]
  - RASH MACULO-PAPULAR [None]
